FAERS Safety Report 23531499 (Version 1)
Quarter: 2024Q1

REPORT INFORMATION
  Report Type: Spontaneous
  Country: US (occurrence: None)
  Receive Date: 20240215
  Receipt Date: 20240215
  Transmission Date: 20240409
  Serious: Yes (Hospitalization, Other)
  Sender: FDA-Public Use
  Company Number: None

PATIENT
  Age: 62 Year
  Sex: Female
  Weight: 78.9 kg

DRUGS (3)
  1. YESCARTA [Suspect]
     Active Substance: AXICABTAGENE CILOLEUCEL
     Indication: Diffuse large B-cell lymphoma
     Dosage: 68 ML ONCE INTRAVENOUS
     Route: 042
     Dates: start: 20231214, end: 20231214
  2. ELIQUIS [Suspect]
     Active Substance: APIXABAN
  3. HEPARIN [Suspect]
     Active Substance: HEPARIN SODIUM

REACTIONS (12)
  - Cytokine release syndrome [None]
  - Respiratory syncytial virus infection [None]
  - Immune effector cell-associated neurotoxicity syndrome [None]
  - Tachycardia [None]
  - Hypotension [None]
  - Pulmonary embolism [None]
  - Subdural haemorrhage [None]
  - Myositis [None]
  - Blood blister [None]
  - Cytomegalovirus viraemia [None]
  - Coronavirus infection [None]
  - Skin lesion [None]

NARRATIVE: CASE EVENT DATE: 20231214
